FAERS Safety Report 12080142 (Version 3)
Quarter: 2017Q1

REPORT INFORMATION
  Report Type: Spontaneous
  Country: BR (occurrence: BR)
  Receive Date: 20160216
  Receipt Date: 20170131
  Transmission Date: 20170428
  Serious: Yes (Other)
  Sender: FDA-Public Use
  Company Number: BR-JNJFOC-20160212059

PATIENT
  Sex: Female
  Weight: 60 kg

DRUGS (6)
  1. METICORTEN [Concomitant]
     Active Substance: PREDNISONE
     Route: 065
  2. CARISOPRODOL. [Concomitant]
     Active Substance: CARISOPRODOL
     Route: 065
  3. SIMPONI [Suspect]
     Active Substance: GOLIMUMAB
     Indication: RHEUMATOID ARTHRITIS
     Route: 058
     Dates: start: 20150511, end: 20150511
  4. LOSARTAN. [Concomitant]
     Active Substance: LOSARTAN
     Route: 065
  5. LEVOTHYROXINE. [Concomitant]
     Active Substance: LEVOTHYROXINE
     Route: 065
  6. OMEPRAZOLE. [Concomitant]
     Active Substance: OMEPRAZOLE
     Route: 065

REACTIONS (4)
  - Joint dislocation [Unknown]
  - Urinary tract infection [Not Recovered/Not Resolved]
  - Arthropathy [Unknown]
  - Treatment noncompliance [Unknown]

NARRATIVE: CASE EVENT DATE: 2015
